FAERS Safety Report 17319769 (Version 14)
Quarter: 2021Q1

REPORT INFORMATION
  Report Type: Report from Study
  Country: BR (occurrence: BR)
  Receive Date: 20200125
  Receipt Date: 20210311
  Transmission Date: 20210419
  Serious: Yes (Hospitalization, Other)
  Sender: FDA-Public Use
  Company Number: NVSC2019BR049450

PATIENT
  Age: 57 Year
  Sex: Female
  Weight: 59 kg

DRUGS (9)
  1. ILARIS [Suspect]
     Active Substance: CANAKINUMAB
     Indication: FAMILIAL MEDITERRANEAN FEVER
     Dosage: UNK
     Route: 058
     Dates: start: 201905
  2. ILARIS [Suspect]
     Active Substance: CANAKINUMAB
     Dosage: UNK
     Route: 065
  3. ILARIS [Suspect]
     Active Substance: CANAKINUMAB
     Dosage: UNK
     Route: 065
  4. ILARIS [Suspect]
     Active Substance: CANAKINUMAB
     Dosage: UNK
     Route: 065
  5. ILARIS [Suspect]
     Active Substance: CANAKINUMAB
     Dosage: UNK
     Route: 065
     Dates: start: 20191114
  6. HYTOS PLUS [Concomitant]
     Indication: PRODUCT USED FOR UNKNOWN INDICATION
     Route: 065
  7. ILARIS [Suspect]
     Active Substance: CANAKINUMAB
     Dosage: UNK
     Route: 065
  8. COLCHICINE. [Suspect]
     Active Substance: COLCHICINE
     Indication: PERIPHERAL SWELLING
     Dosage: UNK
     Route: 065
  9. CLAVULIN [Suspect]
     Active Substance: AMOXICILLIN\CLAVULANATE POTASSIUM
     Indication: PNEUMONIA
     Dosage: UNK
     Route: 065

REACTIONS (43)
  - Catarrh [Unknown]
  - Immunodeficiency [Not Recovered/Not Resolved]
  - Macule [Unknown]
  - Constipation [Unknown]
  - Vasculitis [Unknown]
  - Pneumonitis [Unknown]
  - Back pain [Not Recovered/Not Resolved]
  - Malaise [Recovered/Resolved]
  - Drug hypersensitivity [Recovered/Resolved]
  - Retching [Unknown]
  - Inappropriate schedule of product administration [Unknown]
  - Pneumonia [Recovered/Resolved]
  - Lung disorder [Unknown]
  - Musculoskeletal chest pain [Unknown]
  - Tracheobronchitis [Unknown]
  - Pruritus [Unknown]
  - Nasopharyngitis [Not Recovered/Not Resolved]
  - Protein C increased [Unknown]
  - Swelling face [Recovered/Resolved]
  - Epiglottic oedema [Recovered/Resolved]
  - Tissue infiltration [Unknown]
  - Inflammatory marker increased [Unknown]
  - Arthropathy [Unknown]
  - Pruritus [Recovered/Resolved with Sequelae]
  - Chest pain [Unknown]
  - Erythema [Not Recovered/Not Resolved]
  - Influenza [Unknown]
  - Pulmonary amyloidosis [Recovered/Resolved]
  - Influenza [Recovered/Resolved]
  - Peripheral swelling [Recovered/Resolved]
  - Nerve compression [Unknown]
  - Erythema [Recovered/Resolved with Sequelae]
  - Diarrhoea [Unknown]
  - Dose calculation error [Unknown]
  - Limb injury [Unknown]
  - Anxiety [Not Recovered/Not Resolved]
  - Abdominal pain [Unknown]
  - Cough [Recovered/Resolved]
  - Amyloidosis [Unknown]
  - Abdominal distension [Unknown]
  - Erosive oesophagitis [Unknown]
  - Red blood cell sedimentation rate increased [Unknown]
  - Peripheral swelling [Unknown]

NARRATIVE: CASE EVENT DATE: 201905
